FAERS Safety Report 4596662-9 (Version None)
Quarter: 2005Q1

REPORT INFORMATION
  Report Type: 
  Country: None (occurrence: None)
  Receive Date: 20050228
  Receipt Date: 20050216
  Transmission Date: 20050727
  Serious: Yes (Hospitalization)
  Sender: FDA-Public Use
  Company Number: 2005025188

PATIENT
  Age: 68 Year
  Sex: Male

DRUGS (9)
  1. TAHOR (ATORVASTATIN) [Suspect]
     Indication: ILL-DEFINED DISORDER
     Dosage: 40 MG (1 IN 1 D), ORAL
     Route: 048
  2. ALDACTONE [Suspect]
     Indication: ILL-DEFINED DISORDER
     Dosage: 75 MG (1 IN 1 D), ORAL
     Route: 048
     Dates: end: 20040821
  3. AMLODIPINE [Suspect]
     Indication: ILL-DEFINED DISORDER
     Dosage: 20 MG (5 MG, 2 IN 1 D), ORAL
     Route: 048
  4. IRBESARTAN [Suspect]
     Indication: ILL-DEFINED DISORDER
     Dosage: 1 IN 1 D, ORAL
     Route: 048
     Dates: end: 20040821
  5. URAPIDIL (URAPIDIL) [Suspect]
     Indication: ILL-DEFINED DISORDER
     Dosage: 120 MG (60 MG, 2 IN 1 D), ORAL
  6. FOSINOPRIL SODIUM [Suspect]
     Indication: ILL-DEFINED DISORDER
     Dosage: 20 MG (20 MG, 1 IN 1 D), ORAL
     Route: 048
     Dates: end: 20040821
  7. REPAGLINIDE (REPAGLINIDE) [Concomitant]
  8. ACETYLSALICYLIC ACID SRT [Concomitant]
  9. INDAPAMIDE [Concomitant]

REACTIONS (5)
  - HYPERKALAEMIA [None]
  - HYPONATRAEMIA [None]
  - MALAISE [None]
  - RENAL FAILURE [None]
  - VERTIGO [None]
